FAERS Safety Report 25264063 (Version 3)
Quarter: 2025Q2

REPORT INFORMATION
  Report Type: Spontaneous
  Country: US (occurrence: US)
  Receive Date: 20250502
  Receipt Date: 20250625
  Transmission Date: 20250717
  Serious: No
  Sender: GLAXOSMITHKLINE
  Company Number: US-GSK-US2025AMR053679

PATIENT

DRUGS (3)
  1. NUCALA [Suspect]
     Active Substance: MEPOLIZUMAB
     Indication: Ankylosing spondylitis
  2. NUCALA [Suspect]
     Active Substance: MEPOLIZUMAB
     Indication: Essential hypertension
  3. NUCALA [Suspect]
     Active Substance: MEPOLIZUMAB
     Indication: Anxiety disorder

REACTIONS (1)
  - Off label use [Unknown]
